FAERS Safety Report 8968336 (Version 2)
Quarter: 2013Q2

REPORT INFORMATION
  Report Type: Spontaneous
  Country: US (occurrence: US)
  Receive Date: 20121218
  Receipt Date: 20130508
  Transmission Date: 20140414
  Serious: Yes (Hospitalization)
  Sender: FDA-Public Use
  Company Number: US-BAYER-2012-130113

PATIENT
  Age: 45 Year
  Sex: Female

DRUGS (5)
  1. YASMIN [Suspect]
     Indication: ACNE
     Dosage: UNK
     Dates: start: 200609
  2. AVELOX [Concomitant]
     Dosage: 400 MG, UNK
     Route: 048
     Dates: start: 20061107
  3. ZITHROMAX [Concomitant]
     Dosage: 250 MG, UNK
     Route: 048
     Dates: start: 20061103
  4. CLARITHROMYCIN [Concomitant]
     Dosage: 500 MG, UNK
     Route: 048
     Dates: start: 20061103
  5. PREDNISONE [Concomitant]
     Dosage: 10 MG, UNK
     Route: 048
     Dates: start: 20061109

REACTIONS (5)
  - Pulmonary embolism [Recovering/Resolving]
  - Deep vein thrombosis [Recovered/Resolved]
  - Injury [Recovering/Resolving]
  - Pain [Recovering/Resolving]
  - Pain [None]
